FAERS Safety Report 5281868-6 (Version None)
Quarter: 2007Q1

REPORT INFORMATION
  Report Type: 
  Country: None (occurrence: None)
  Receive Date: 20070326
  Receipt Date: 20070314
  Transmission Date: 20070707
  Serious: Yes (Life-Threatening, Hospitalization)
  Sender: FDA-Public Use
  Company Number: MC200700231

PATIENT
  Age: 58 Year
  Sex: Male
  Weight: 80 kg

DRUGS (12)
  1. ANGIOMAX [Suspect]
     Dosage: 60 MG, BOLUS, IV BOLUS
     Route: 040
     Dates: start: 20060622, end: 20060622
  2. POLOCARD (ACETYLSALICYLIC ACID) [Concomitant]
  3. PLAVIX [Concomitant]
  4. METOCARD (METOPROLOL TARTRATE) [Concomitant]
  5. PRESTARIUM /00790701/(PERINDOPRIL) [Concomitant]
  6. SPIRONOLACTONE [Concomitant]
  7. HYDROCHLOROTHIAZIDE [Concomitant]
  8. KALDYUM (POTASSIUM CHLORIDE) [Concomitant]
  9. ZOCOR [Concomitant]
  10. ACTRAPID /00646001/(INSULIN HUMAN) [Concomitant]
  11. INSULATARD /00030504/(INSULIN INJECTION, ISOPHANE) [Concomitant]
  12. ANGIOMAX [Suspect]
     Dosage: 140 MG, HR, INTRAVENOUS
     Route: 042
     Dates: start: 20060622, end: 20060622

REACTIONS (6)
  - ACUTE CORONARY SYNDROME [None]
  - ANGINA UNSTABLE [None]
  - EJECTION FRACTION DECREASED [None]
  - ELECTROCARDIOGRAM ST SEGMENT DEPRESSION [None]
  - EXERCISE TEST ABNORMAL [None]
  - EXERCISE TOLERANCE DECREASED [None]
